FAERS Safety Report 15451276 (Version 1)
Quarter: 2018Q3

REPORT INFORMATION
  Report Type: Spontaneous
  Country: US (occurrence: US)
  Receive Date: 20180927
  Receipt Date: 20180927
  Transmission Date: 20181010
  Serious: Yes (Hospitalization)
  Sender: FDA-Public Use
  Company Number: None

PATIENT
  Age: 37 Year
  Sex: Male
  Weight: 84.37 kg

DRUGS (2)
  1. CLOZAPINE 100MG [Suspect]
     Active Substance: CLOZAPINE
     Indication: SCHIZOAFFECTIVE DISORDER
     Route: 048
     Dates: start: 20180823, end: 20180903
  2. CLOZAPINE 100MG [Suspect]
     Active Substance: CLOZAPINE
     Indication: BIPOLAR DISORDER

REACTIONS (1)
  - Haematemesis [None]
